FAERS Safety Report 4879466-9 (Version None)
Quarter: 2005Q4

REPORT INFORMATION
  Report Type: 
  Country: None (occurrence: None)
  Receive Date: 20051209
  Receipt Date: 20051010
  Transmission Date: 20060501
  Serious: Yes (Hospitalization)
  Sender: FDA-Public Use
  Company Number: USA-2005-0021459

PATIENT
  Age: 63 Year
  Sex: Female

DRUGS (2)
  1. OXYCONTIN [Suspect]
     Indication: PAIN
     Dosage: 30 MG, Q12H
     Dates: start: 20050501
  2. PERCOCET [Suspect]
     Indication: PAIN
     Dosage: 40 MG, DAILY
     Dates: start: 19850101

REACTIONS (2)
  - ABDOMINAL PAIN [None]
  - URINARY RETENTION [None]
